FAERS Safety Report 8384136-9 (Version None)
Quarter: 2012Q2

REPORT INFORMATION
  Report Type: 
  Country: None (occurrence: None)
  Receive Date: 20120524
  Receipt Date: 20120521
  Transmission Date: 20120825
  Serious: Yes (Hospitalization)
  Sender: FDA-Public Use
  Company Number: FR-PFIZER INC-2012123712

PATIENT
  Age: 73 Year
  Sex: Female

DRUGS (1)
  1. HALOPERIDOL [Suspect]
     Indication: DELUSIONAL DISORDER, UNSPECIFIED TYPE
     Dosage: UNK, TWO INJECTIONS

REACTIONS (4)
  - PARKINSONISM [None]
  - HYPOKALAEMIA [None]
  - DECREASED APPETITE [None]
  - FATIGUE [None]
